FAERS Safety Report 25954763 (Version 2)
Quarter: 2025Q4

REPORT INFORMATION
  Report Type: Spontaneous
  Country: EU (occurrence: EU)
  Receive Date: 20251024
  Receipt Date: 20251030
  Transmission Date: 20260117
  Serious: Yes (Other)
  Sender: JOHNSON AND JOHNSON
  Company Number: EU-JNJFOC-20251019925

PATIENT
  Sex: Female

DRUGS (2)
  1. AMIVANTAMAB\HYALURONIDASE (HUMAN RECOMBINANT) [Suspect]
     Active Substance: AMIVANTAMAB\HYALURONIDASE (HUMAN RECOMBINANT)
     Indication: Non-small cell lung cancer
     Route: 058
  2. LAZERTINIB [Suspect]
     Active Substance: LAZERTINIB
     Indication: Non-small cell lung cancer
     Route: 048

REACTIONS (1)
  - Hypertransaminasaemia [Not Recovered/Not Resolved]

NARRATIVE: CASE EVENT DATE: 20251015
